FAERS Safety Report 5814828-4 (Version None)
Quarter: 2008Q3

REPORT INFORMATION
  Report Type: 
  Country: None (occurrence: None)
  Receive Date: 20080718
  Receipt Date: 20080707
  Transmission Date: 20090109
  Serious: Yes (Hospitalization, Other)
  Sender: FDA-Public Use
  Company Number: US-WYE-H04875808

PATIENT
  Sex: Female
  Weight: 86.26 kg

DRUGS (4)
  1. PREMPRO [Suspect]
     Indication: HORMONE THERAPY
     Dosage: 0.3MG /1.5 MG DAILY
     Route: 048
     Dates: end: 20080704
  2. METOPROLOL SUCCINATE [Concomitant]
     Indication: BLOOD PRESSURE
     Dosage: ONCE DAILY
     Route: 048
  3. BALSALAZIDE DISODIUM [Concomitant]
  4. ACETYLSALICYLIC ACID SRT [Concomitant]
     Dosage: ONCE DAILY
     Route: 048

REACTIONS (3)
  - BLOOD PRESSURE INCREASED [None]
  - HEADACHE [None]
  - MENINGITIS [None]
